FAERS Safety Report 13898879 (Version 1)
Quarter: 2017Q3

REPORT INFORMATION
  Report Type: Spontaneous
  Country: US (occurrence: US)
  Receive Date: 20170823
  Receipt Date: 20170823
  Transmission Date: 20171127
  Serious: No
  Sender: FDA-Public Use
  Company Number: None

PATIENT
  Age: 54 Year
  Sex: Male

DRUGS (1)
  1. CLINDAMYCIN/BENZOYL PEROXIDE GEL PUMP [Suspect]
     Active Substance: BENZOYL PEROXIDE\CLINDAMYCIN PHOSPHATE
     Route: 061
     Dates: start: 20170811, end: 20170823

REACTIONS (3)
  - Drug ineffective [None]
  - Product quality issue [None]
  - Device malfunction [None]
